FAERS Safety Report 8549414-9 (Version None)
Quarter: 2012Q3

REPORT INFORMATION
  Report Type: 
  Country: None (occurrence: None)
  Receive Date: 20120730
  Receipt Date: 20120727
  Transmission Date: 20120928
  Serious: Yes (Other)
  Sender: FDA-Public Use
  Company Number: US-PFIZER INC-2012182965

PATIENT
  Sex: Female
  Weight: 74.83 kg

DRUGS (5)
  1. SYNTHROID [Concomitant]
     Indication: THYROIDECTOMY
     Dosage: 125 UG, DAILY
  2. PROCARDIA [Suspect]
     Indication: ANGINA PECTORIS
     Dosage: UNK
  3. SYNTHROID [Concomitant]
     Indication: THYROID CANCER
  4. CALAN SR [Suspect]
     Indication: ANGINA PECTORIS
     Dosage: 240 MG, DAILY
     Dates: start: 19880101
  5. BONIVA [Concomitant]
     Indication: BONE DISORDER
     Dosage: UNK

REACTIONS (1)
  - SPINAL FRACTURE [None]
